FAERS Safety Report 10631903 (Version 2)
Quarter: 2014Q4

REPORT INFORMATION
  Report Type: Spontaneous
  Country: US (occurrence: US)
  Receive Date: 20141205
  Receipt Date: 20141205
  Transmission Date: 20150529
  Serious: No
  Sender: FDA-Public Use
  Company Number: US-BRISTOL-MYERS SQUIBB COMPANY-21294137

PATIENT
  Age: 75 Year
  Sex: Male

DRUGS (1)
  1. YERVOY [Suspect]
     Active Substance: IPILIMUMAB

REACTIONS (5)
  - Stomatitis [Unknown]
  - Nausea [Unknown]
  - Liver function test abnormal [Unknown]
  - Rash pruritic [Unknown]
  - Diarrhoea [Unknown]
